FAERS Safety Report 24658884 (Version 1)
Quarter: 2024Q4

REPORT INFORMATION
  Report Type: Spontaneous
  Country: US (occurrence: None)
  Receive Date: 20241124
  Receipt Date: 20241124
  Transmission Date: 20250115
  Serious: Yes (Hospitalization)
  Sender: Public
  Company Number: None

PATIENT
  Sex: Female

DRUGS (4)
  1. TACROLIMUS [Suspect]
     Active Substance: TACROLIMUS
     Indication: Liver transplant
     Dosage: FREQ: TAKE 1 CAPSULE (1 MG TOTAL) BY MOUTH EVERY MORNING AND 1 CAPSULE (1 MG TOTAL) EVERY EVENING
     Route: 048
     Dates: start: 20210513
  2. TACROLIMUS [Suspect]
     Active Substance: TACROLIMUS
     Dosage: OTHER FREQUENCY : EVERY EVENING;?
     Route: 048
     Dates: start: 20210513
  3. MYCOPHENOLIC ACID [Concomitant]
     Active Substance: MYCOPHENOLIC ACID
  4. VEMLIDY [Concomitant]
     Active Substance: TENOFOVIR ALAFENAMIDE FUMARATE

REACTIONS (1)
  - Surgery [None]
